FAERS Safety Report 23407306 (Version 3)
Quarter: 2024Q1

REPORT INFORMATION
  Report Type: Report from Study
  Country: US (occurrence: US)
  Receive Date: 20240116
  Receipt Date: 20240320
  Transmission Date: 20240409
  Serious: Yes (Hospitalization, Other)
  Sender: FDA-Public Use
  Company Number: US-ABBVIE-5588452

PATIENT
  Age: 15 Year
  Sex: Female
  Weight: 72 kg

DRUGS (11)
  1. HUMIRA [Suspect]
     Active Substance: ADALIMUMAB
     Indication: Crohn^s disease
     Dosage: FORM STRENGTH: 40MG ?CITRATE FREE
     Route: 058
     Dates: start: 20230814
  2. HUMIRA [Suspect]
     Active Substance: ADALIMUMAB
     Dosage: FORM STRENGTH: 40MG ?CITRATE FREE
     Route: 058
  3. AZELAIC ACID [Concomitant]
     Active Substance: AZELAIC ACID
     Indication: Product used for unknown indication
     Dosage: 1 APPLICATION TOP TWICE DAILY. REFILLS: 1.?15% TOPICAL GEL
     Route: 061
  4. FERROUS SULFATE [Concomitant]
     Active Substance: FERROUS SULFATE
     Indication: Mineral supplementation
     Dosage: (65 MG ELEMENTAL IRON) ORAL DELAYED RELEASE TABLET? 1 TAB(S) ORAL ONCE DAILY FOR 30 DAYS. REFILLS...
     Route: 048
  5. METHOTREXATE [Concomitant]
     Active Substance: METHOTREXATE
     Indication: Product used for unknown indication
     Dosage: DOSAGE: 25 MG/ML INJECT 20 MG ( 0.8 ML)
     Route: 058
  6. FLUCONAZOLE [Concomitant]
     Active Substance: FLUCONAZOLE
     Indication: Product used for unknown indication
     Dosage: ORAL ONE DOSE/TIME ONLY
     Route: 048
  7. VANCOMYCIN [Concomitant]
     Active Substance: VANCOMYCIN
     Indication: Product used for unknown indication
     Dosage: 1 CAP ORAL FOUR TIMES DAILY. TAKE 1 CAPSULE 4 TIMES DAILY FOR 2 WEEKS, THEN TAKE 1 CAPSULE 2 TIME...
     Route: 048
  8. FAMOTIDINE [Concomitant]
     Active Substance: FAMOTIDINE
     Indication: Gastrointestinal disorder
     Dosage: 1 TAB(S) ORAL TWICE DAILY FOR 30 DAYS
     Route: 048
  9. POLYETHYLENE GLYCOL 3350 [Concomitant]
     Active Substance: POLYETHYLENE GLYCOL 3350
     Indication: Gastrointestinal disorder
     Dosage: MIRALAX ORAL POWDER FOR RECONSTITUTION?DISSOLVE IN WATER BEFORE TAKING
     Route: 048
  10. PREDNISONE [Concomitant]
     Active Substance: PREDNISONE
     Indication: Product used for unknown indication
     Dosage: 2 TAB(S) ORAL ONCE DAILY FOR 30 DAYS
     Route: 048
  11. ACETAMINOPHEN [Concomitant]
     Active Substance: ACETAMINOPHEN
     Indication: Pain
     Dosage: 3 TAB(S) ORAL EVERY 6 HOURS AS NEEDED SEE ORDER COMMENTS PAIN (MILD1-3).
     Route: 048

REACTIONS (7)
  - Intestinal obstruction [Not Recovered/Not Resolved]
  - Haematemesis [Recovered/Resolved]
  - Dizziness [Unknown]
  - Abdominal distension [Unknown]
  - Occult blood positive [Unknown]
  - Clostridium difficile infection [Unknown]
  - Crohn^s disease [Unknown]

NARRATIVE: CASE EVENT DATE: 20240110
